FAERS Safety Report 19927860 (Version 1)
Quarter: 2021Q4

REPORT INFORMATION
  Report Type: Spontaneous
  Country: US (occurrence: US)
  Receive Date: 20211006
  Receipt Date: 20211006
  Transmission Date: 20220303
  Serious: Yes (Hospitalization, Disabling)
  Sender: FDA-Public Use
  Company Number: None

PATIENT
  Age: 30 Year
  Sex: Female
  Weight: 60.75 kg

DRUGS (6)
  1. DYSPORT [Suspect]
     Active Substance: ABOBOTULINUMTOXINA
     Indication: Skin cosmetic procedure
     Dosage: ?          QUANTITY:1 INJECTION(S);
     Dates: start: 20200529, end: 20200529
  2. CDP CHOLINE [Concomitant]
  3. ASHWAGHANDA [Concomitant]
  4. MAGNESIUM [Concomitant]
     Active Substance: MAGNESIUM
  5. COPPER [Concomitant]
     Active Substance: COPPER
  6. GABA [Concomitant]
     Active Substance: HOMEOPATHICS

REACTIONS (2)
  - Toxicity to various agents [None]
  - Adverse event [None]

NARRATIVE: CASE EVENT DATE: 20200608
